FAERS Safety Report 8727053 (Version 2)
Quarter: 2012Q4

REPORT INFORMATION
  Report Type: Report from Study
  Country: CH (occurrence: CH)
  Receive Date: 20120816
  Receipt Date: 20120914
  Transmission Date: 20130627
  Serious: Yes (Hospitalization)
  Sender: FDA-Public Use
  Company Number: CH-PFIZER INC-2012195387

PATIENT
  Age: 40 Year
  Sex: Female

DRUGS (9)
  1. GENOTROPIN [Suspect]
     Dosage: 0.5 mg, 1x/day
     Dates: start: 19980623
  2. GENOTROPIN [Suspect]
     Dosage: 1 mg, 1x/day
  3. HYDROCORTISONE [Concomitant]
     Dosage: 20 mg, 1x/day
     Dates: start: 20090623
  4. NORPROLAC ^NOVARTIS^ [Concomitant]
     Dosage: 75 ug, 1x/day
     Dates: start: 20080729
  5. CALCIMAGON-D3 [Concomitant]
     Dosage: 2 DF, 1x/day
     Dates: start: 20020611
  6. LEVOTHYROXINE [Concomitant]
     Dosage: 75 ug, 1x/day
     Dates: start: 20010613
  7. CYCLACUR [Concomitant]
     Dosage: 1 Unit, 1x/day
     Dates: start: 19991014
  8. PARACETAMOL [Concomitant]
     Dosage: 500 mg, monthly
     Dates: start: 19990215
  9. MIDAZOLAM [Concomitant]
     Dosage: 7.5 mg, 1x/day
     Dates: start: 19981215

REACTIONS (1)
  - Arthropathy [Unknown]
